FAERS Safety Report 5356230-8 (Version None)
Quarter: 2007Q2

REPORT INFORMATION
  Report Type: 
  Country: None (occurrence: None)
  Receive Date: 20070612
  Receipt Date: 20070606
  Transmission Date: 20071010
  Serious: Yes (Other)
  Sender: FDA-Public Use
  Company Number: US-PFIZER INC-2007046890

PATIENT
  Sex: Female

DRUGS (1)
  1. VISTARIL CAP [Suspect]
     Dates: start: 20070601, end: 20070601

REACTIONS (8)
  - ANXIETY [None]
  - CHEST PAIN [None]
  - DIZZINESS [None]
  - DYSARTHRIA [None]
  - FEELING ABNORMAL [None]
  - HYPOGLYCAEMIA [None]
  - LIP DISORDER [None]
  - VOMITING [None]
